FAERS Safety Report 4902619-8 (Version None)
Quarter: 2006Q1

REPORT INFORMATION
  Report Type: 
  Country: None (occurrence: None)
  Receive Date: 20060207
  Receipt Date: 20060127
  Transmission Date: 20060701
  Serious: Yes (Other)
  Sender: FDA-Public Use
  Company Number: JP-BRISTOL-MYERS SQUIBB COMPANY-13262803

PATIENT
  Age: 82 Year
  Sex: Male

DRUGS (1)
  1. MAXIPIME [Suspect]
     Route: 065
     Dates: start: 20060112, end: 20060114

REACTIONS (1)
  - BLOOD PRESSURE DECREASED [None]
